FAERS Safety Report 19374848 (Version 1)
Quarter: 2021Q2

REPORT INFORMATION
  Report Type: Other
  Country: US (occurrence: US)
  Receive Date: 20210604
  Receipt Date: 20210604
  Transmission Date: 20210717
  Serious: Yes (Other)
  Sender: FDA-Public Use
  Company Number: US-P+L DEVELOPMENTS OF NEWYORK CORPORATION-2112346

PATIENT
  Age: 15 Year
  Sex: Female
  Weight: 63.8 kg

DRUGS (1)
  1. IBUPROFEN TABLETS 200 MG [Suspect]
     Active Substance: IBUPROFEN
     Indication: DYSMENORRHOEA
     Route: 065

REACTIONS (2)
  - Overdose [Unknown]
  - Glomerulonephritis membranous [Recovering/Resolving]
